FAERS Safety Report 14080401 (Version 2)
Quarter: 2017Q4

REPORT INFORMATION
  Report Type: Spontaneous
  Country: AU (occurrence: AU)
  Receive Date: 20171012
  Receipt Date: 20171117
  Transmission Date: 20180321
  Serious: Yes (Other)
  Sender: FDA-Public Use
  Company Number: PHHY2017AU149714

PATIENT
  Sex: Female

DRUGS (1)
  1. RISPERIDONE SANDOZ [Suspect]
     Active Substance: RISPERIDONE
     Indication: PRODUCT USED FOR UNKNOWN INDICATION
     Route: 065

REACTIONS (4)
  - Thrombosis [Unknown]
  - Irritability [Unknown]
  - Allergy to chemicals [Unknown]
  - Anxiety [Unknown]

NARRATIVE: CASE EVENT DATE: 20171006
